FAERS Safety Report 19117495 (Version 2)
Quarter: 2021Q2

REPORT INFORMATION
  Report Type: Spontaneous
  Country: DE (occurrence: DE)
  Receive Date: 20210409
  Receipt Date: 20210528
  Transmission Date: 20210717
  Serious: Yes (Other)
  Sender: FDA-Public Use
  Company Number: NVSC2021DE076392

PATIENT
  Age: 83 Year
  Sex: Male
  Weight: 95 kg

DRUGS (8)
  1. BUDES 64 MIKROGRAMM/SPRUHSTO NASENSPRAY,SUSPENSION [Suspect]
     Active Substance: BUDESONIDE
     Dosage: UNK
     Route: 065
     Dates: start: 20210309
  2. BUDES 64 MIKROGRAMM/SPRUHSTO NASENSPRAY,SUSPENSION [Suspect]
     Active Substance: BUDESONIDE
     Dosage: UNK
     Route: 065
     Dates: start: 20210330
  3. BUDES 64 MIKROGRAMM/SPRUHSTO NASENSPRAY,SUSPENSION [Suspect]
     Active Substance: BUDESONIDE
     Dosage: 64 UG, BID (1 PUMP EACH NOSTRIL)
     Route: 065
     Dates: start: 20210406, end: 20210417
  4. TAMSULOSIN AL [Concomitant]
     Indication: PRODUCT USED FOR UNKNOWN INDICATION
     Dosage: UNK UNK, QD (0?0?1?0)
     Route: 065
  5. BUDES 64 MIKROGRAMM/SPRUHSTO NASENSPRAY,SUSPENSION [Suspect]
     Active Substance: BUDESONIDE
     Indication: NASAL CONGESTION
     Dosage: 64 UG, BID (1 PUMP EACH NOSTRIL)
     Route: 065
     Dates: start: 20210303, end: 20210324
  6. ELIQUIS [Concomitant]
     Active Substance: APIXABAN
     Indication: PRODUCT USED FOR UNKNOWN INDICATION
     Dosage: UNK UNK, BID (1?0?1?0)
     Route: 065
  7. CONCOR [Concomitant]
     Active Substance: BISOPROLOL FUMARATE
     Indication: PRODUCT USED FOR UNKNOWN INDICATION
     Dosage: UNK UNK, BID (1?0?1?0)
     Route: 065
  8. TROMCARDIN [Concomitant]
     Active Substance: MAGNESIUM ASPARTATE\POTASSIUM ASPARTATE
     Indication: PRODUCT USED FOR UNKNOWN INDICATION
     Dosage: UNK UNK, QD (0?1?0?0)
     Route: 065

REACTIONS (4)
  - Road traffic accident [Unknown]
  - Headache [Unknown]
  - Loss of consciousness [Recovered/Resolved]
  - Dyspnoea [Unknown]

NARRATIVE: CASE EVENT DATE: 20210309
